FAERS Safety Report 8084929-1 (Version None)
Quarter: 2012Q1

REPORT INFORMATION
  Report Type: 
  Country: None (occurrence: None)
  Receive Date: 20120128
  Receipt Date: 20110328
  Transmission Date: 20120608
  Serious: No
  Sender: FDA-Public Use
  Company Number: US-ABBOTT-11P-163-0714730-00

PATIENT
  Age: 30 Year
  Sex: Male

DRUGS (3)
  1. IMITREX [Concomitant]
     Indication: MIGRAINE
  2. TOPICAL OINTMENTS [Concomitant]
     Indication: PSORIASIS
     Route: 061
  3. HUMIRA [Suspect]
     Indication: PSORIASIS

REACTIONS (5)
  - STREPTOCOCCAL INFECTION [None]
  - HYPOAESTHESIA [None]
  - PARAESTHESIA [None]
  - PHARYNGITIS STREPTOCOCCAL [None]
  - WEIGHT DECREASED [None]
